FAERS Safety Report 11532870 (Version 1)
Quarter: 2015Q3

REPORT INFORMATION
  Report Type: Spontaneous
  Country: CN (occurrence: CN)
  Receive Date: 20150921
  Receipt Date: 20150921
  Transmission Date: 20151125
  Serious: Yes (Other)
  Sender: FDA-Public Use
  Company Number: CN-MYLANLABS-2015M1031470

PATIENT

DRUGS (8)
  1. CALCITRIOL. [Concomitant]
     Active Substance: CALCITRIOL
     Dosage: 0.25 MICROG
     Route: 065
  2. METHYLPREDNISOLONE. [Suspect]
     Active Substance: METHYLPREDNISOLONE
     Indication: BEHCET^S SYNDROME
     Dosage: 6MG ONCE EVERY OTHER DAY
     Route: 065
  3. PARACETAMOL [Concomitant]
     Active Substance: ACETAMINOPHEN
     Indication: ANALGESIC INTERVENTION SUPPORTIVE THERAPY
     Dosage: 650MG ONCE
     Route: 048
  4. TRIPTERYGIUM SPP. TOTAL GLYCOSIDE EXTRACT [Concomitant]
     Route: 065
  5. ZOLEDRONIC ACID [Suspect]
     Active Substance: ZOLEDRONIC ACID
     Indication: OSTEOPOROSIS
     Dosage: 5MG
     Route: 041
     Dates: start: 20120412
  6. GLUCUROLACTONE [Concomitant]
     Active Substance: GLUCUROLACTONE
     Dosage: 100MG 3/D
     Route: 048
  7. CALCIUM [Concomitant]
     Active Substance: CALCIUM
     Dosage: 600MG PER DAY
     Route: 065
  8. METFORMIN [Concomitant]
     Active Substance: METFORMIN HYDROCHLORIDE
     Indication: DIABETES MELLITUS
     Route: 065

REACTIONS (7)
  - Hepatic enzyme increased [Recovered/Resolved]
  - Arthralgia [Recovering/Resolving]
  - Osteoporosis [Recovering/Resolving]
  - Liver injury [Recovered/Resolved]
  - Myalgia [Recovering/Resolving]
  - Osteoporotic fracture [Recovering/Resolving]
  - Pyrexia [Recovering/Resolving]
